FAERS Safety Report 13631129 (Version 1)
Quarter: 2017Q2

REPORT INFORMATION
  Report Type: Spontaneous
  Country: US (occurrence: US)
  Receive Date: 20170531
  Receipt Date: 20170531
  Transmission Date: 20170830
  Serious: No
  Sender: FDA-Public Use
  Company Number: US-ASTELLAS-1353602

PATIENT
  Sex: Female

DRUGS (8)
  1. TARCEVA [Suspect]
     Active Substance: ERLOTINIB HYDROCHLORIDE
     Indication: LUNG NEOPLASM MALIGNANT
     Route: 048
     Dates: start: 20131120
  2. ONDANSETRON [Concomitant]
     Active Substance: ONDANSETRON
  3. COMPAZINE [Concomitant]
     Active Substance: PROCHLORPERAZINE MALEATE
  4. AMIODARONE [Concomitant]
     Active Substance: AMIODARONE
  5. WARFARIN [Concomitant]
     Active Substance: WARFARIN
  6. SIMVASTATIN. [Concomitant]
     Active Substance: SIMVASTATIN
  7. ZOLPIDEM [Concomitant]
     Active Substance: ZOLPIDEM\ZOLPIDEM TARTRATE
  8. BUPROPION. [Concomitant]
     Active Substance: BUPROPION

REACTIONS (1)
  - Dry skin [Not Recovered/Not Resolved]
